FAERS Safety Report 6116983-8 (Version None)
Quarter: 2009Q1

REPORT INFORMATION
  Report Type: 
  Country: None (occurrence: None)
  Receive Date: 20090314
  Receipt Date: 20090101
  Transmission Date: 20090719
  Serious: No
  Sender: FDA-Public Use
  Company Number: US-ABBOTT-09P-163-0495806-00

PATIENT
  Sex: Male
  Weight: 93.07 kg

DRUGS (1)
  1. HUMIRA [Suspect]
     Indication: ANKYLOSING SPONDYLITIS
     Route: 058
     Dates: start: 20081010

REACTIONS (13)
  - ACNE PUSTULAR [None]
  - BLOOD TESTOSTERONE DECREASED [None]
  - DEPRESSED MOOD [None]
  - ERYTHEMA [None]
  - LIBIDO DECREASED [None]
  - LOCAL SWELLING [None]
  - NASOPHARYNGITIS [None]
  - PRURITUS [None]
  - RASH PUSTULAR [None]
  - SCAB [None]
  - SKIN ULCER [None]
  - TENDERNESS [None]
  - VIRAL INFECTION [None]
